FAERS Safety Report 19622830 (Version 1)
Quarter: 2021Q3

REPORT INFORMATION
  Report Type: Spontaneous
  Country: GB (occurrence: GB)
  Receive Date: 20210728
  Receipt Date: 20210728
  Transmission Date: 20211014
  Serious: Yes (Life-Threatening, Hospitalization, Other)
  Sender: FDA-Public Use
  Company Number: GB-VERTEX PHARMACEUTICALS-2021-011098

PATIENT
  Sex: Male

DRUGS (9)
  1. DORNASE [Concomitant]
     Active Substance: STREPTODORNASE\STREPTOKINASE
  2. PRELONE [Concomitant]
     Active Substance: PREDNISOLONE
  3. KAFTRIO [Suspect]
     Active Substance: ELEXACAFTOR\IVACAFTOR\TEZACAFTOR
     Indication: CYSTIC FIBROSIS
     Dosage: (75 MG IVA/ 50 MG TEZA/100 MG ELEXA) DAILY
     Route: 048
     Dates: start: 202009
  4. HYDROCORTISONE. [Concomitant]
     Active Substance: HYDROCORTISONE
  5. PAROXETINE. [Concomitant]
     Active Substance: PAROXETINE
  6. LORATADINE. [Concomitant]
     Active Substance: LORATADINE
  7. COLOMYCIN [COLISTIN SULFATE] [Concomitant]
     Active Substance: COLISTIN SULFATE
  8. KALYDECO [Suspect]
     Active Substance: IVACAFTOR
     Indication: CYSTIC FIBROSIS
     Dosage: (150 MILLIGRAM) IN EVENING
     Route: 048
     Dates: start: 202009
  9. SPIRONOLACTONE. [Concomitant]
     Active Substance: SPIRONOLACTONE

REACTIONS (2)
  - Hepatic cirrhosis [Unknown]
  - Haemorrhage [Unknown]
